FAERS Safety Report 10187252 (Version 1)
Quarter: 2014Q2

REPORT INFORMATION
  Report Type: Report from Study
  Country: US (occurrence: US)
  Receive Date: 20140522
  Receipt Date: 20140522
  Transmission Date: 20141212
  Serious: Yes (Hospitalization)
  Sender: FDA-Public Use
  Company Number: PHEH2014US010122

PATIENT
  Sex: Male

DRUGS (1)
  1. DIOVAN [Suspect]
     Dosage: 160 MG, UNK
     Route: 048

REACTIONS (3)
  - Neoplasm malignant [Unknown]
  - Pneumonia [Unknown]
  - Deafness unilateral [Unknown]
